FAERS Safety Report 16564966 (Version 1)
Quarter: 2019Q3

REPORT INFORMATION
  Report Type: Spontaneous
  Country: KR (occurrence: KR)
  Receive Date: 20190712
  Receipt Date: 20190712
  Transmission Date: 20191004
  Serious: Yes (Other)
  Sender: FDA-Public Use
  Company Number: KR-BAYER-2019-124189

PATIENT
  Sex: Male

DRUGS (1)
  1. NEXAVAR [Suspect]
     Active Substance: SORAFENIB

REACTIONS (9)
  - Haematochezia [None]
  - Ear congestion [None]
  - Vision blurred [None]
  - Faeces discoloured [None]
  - Ascites [None]
  - Eating disorder [None]
  - Abdominal distension [None]
  - Ear discomfort [None]
  - Abdominal pain upper [None]
